FAERS Safety Report 6580359-X (Version None)
Quarter: 2010Q1

REPORT INFORMATION
  Report Type: 
  Country: None (occurrence: None)
  Receive Date: 20100212
  Receipt Date: 20100201
  Transmission Date: 20100710
  Serious: Yes (Other)
  Sender: FDA-Public Use
  Company Number: PHHY2010US05709

PATIENT
  Sex: Female

DRUGS (3)
  1. SANDOSTATIN LAR [Suspect]
     Indication: CARCINOID SYNDROME
     Dosage: 60 MG EVERY 28 DAYS
     Route: 030
  2. SANDOSTATIN LAR [Suspect]
     Dosage: 70 MG EVERY 28 DAYS
     Route: 030
  3. SANDOSTATIN [Suspect]
     Indication: DIARRHOEA
     Dosage: 3 DOSE OF 200 UG
     Dates: start: 20100101

REACTIONS (4)
  - DIARRHOEA [None]
  - FLUSHING [None]
  - INJECTION SITE MASS [None]
  - MALIGNANT NEOPLASM PROGRESSION [None]
